FAERS Safety Report 6605103-9 (Version None)
Quarter: 2010Q1

REPORT INFORMATION
  Report Type: 
  Country: None (occurrence: None)
  Receive Date: 20100226
  Receipt Date: 20100217
  Transmission Date: 20100710
  Serious: Yes (Hospitalization, Other)
  Sender: FDA-Public Use
  Company Number: US-ELI_LILLY_AND_COMPANY-US201002004975

PATIENT
  Age: 82 Year
  Sex: Female

DRUGS (5)
  1. HUMALOG MIX 75/25 [Suspect]
     Indication: DIABETES MELLITUS
     Dosage: 35 U, EACH MORNING
  2. HUMALOG MIX 75/25 [Suspect]
     Dosage: 40 U, EACH EVENING
  3. VICODIN [Concomitant]
     Indication: PAIN
  4. MORPHINE [Concomitant]
  5. COUMADIN [Concomitant]

REACTIONS (11)
  - ARTHRITIS [None]
  - CARDIAC FAILURE [None]
  - DIABETIC NEUROPATHY [None]
  - FACIAL BONES FRACTURE [None]
  - FALL [None]
  - HAEMORRHAGE [None]
  - JOINT INJURY [None]
  - KNEE ARTHROPLASTY [None]
  - MEMORY IMPAIRMENT [None]
  - MYALGIA [None]
  - THYROID OPERATION [None]
